FAERS Safety Report 8850585 (Version 2)
Quarter: 2013Q1

REPORT INFORMATION
  Report Type: Report from Study
  Country: CN (occurrence: CN)
  Receive Date: 20121019
  Receipt Date: 20130218
  Transmission Date: 20140127
  Serious: Yes (Hospitalization, Disabling, Other)
  Sender: FDA-Public Use
  Company Number: CN-ASTRAZENECA-2012SE79157

PATIENT
  Age: 24618 Day
  Sex: Male

DRUGS (14)
  1. AZD6140 [Suspect]
     Indication: CORONARY ARTERY DISEASE
     Route: 048
     Dates: start: 20120110, end: 20120829
  2. AZD6140 [Suspect]
     Indication: CORONARY ARTERY DISEASE
     Route: 048
     Dates: start: 20121025
  3. ASA [Concomitant]
     Route: 048
  4. LIPITOR [Concomitant]
     Indication: CARDIAC DISORDER
     Route: 048
     Dates: start: 20120829
  5. CLOPIDOGREL [Concomitant]
     Indication: CARDIAC DISORDER
     Route: 048
     Dates: start: 20120829
  6. TELMISARTAN [Concomitant]
     Indication: CARDIAC DISORDER
     Route: 048
     Dates: start: 20120829
  7. TELMISARTAN [Concomitant]
     Indication: HYPERTENSION
     Route: 048
     Dates: start: 20120829
  8. LOW MOLECULAR WEIGHT HEPARIN [Concomitant]
     Indication: CARDIAC DISORDER
     Route: 058
     Dates: start: 20120829, end: 20120904
  9. LOW MOLECULAR WEIGHT HEPARIN [Concomitant]
     Indication: CARDIAC DISORDER
     Route: 042
     Dates: start: 20120920, end: 20120929
  10. ISOSORBIDE MONONITRATE [Concomitant]
     Indication: CARDIAC DISORDER
     Route: 042
     Dates: start: 20120829, end: 20120903
  11. ISOSORBIDE MONONITRATE [Concomitant]
     Indication: ANGINA UNSTABLE
     Route: 042
     Dates: start: 20120829, end: 20120903
  12. ISOSORBIDE MONONITRATE [Concomitant]
     Indication: CARDIAC DISORDER
     Route: 042
     Dates: start: 20120920, end: 20120929
  13. ISOSORBIDE MONONITRATE [Concomitant]
     Indication: ANGINA UNSTABLE
     Route: 042
     Dates: start: 20120920, end: 20120929
  14. LANSOPRAZOLE [Concomitant]
     Indication: GASTRITIS PROPHYLAXIS
     Route: 048
     Dates: start: 20120920, end: 20120929

REACTIONS (1)
  - Sudden hearing loss [Not Recovered/Not Resolved]
